FAERS Safety Report 7280781-2 (Version None)
Quarter: 2011Q1

REPORT INFORMATION
  Report Type: 
  Country: None (occurrence: None)
  Receive Date: 20110208
  Receipt Date: 20110126
  Transmission Date: 20110831
  Serious: Yes (Hospitalization)
  Sender: FDA-Public Use
  Company Number: IT-ASTRAZENECA-2011SE03346

PATIENT
  Age: 27333 Day
  Sex: Male

DRUGS (26)
  1. LONGASTATINA [Concomitant]
  2. CLEXANE [Concomitant]
  3. DIFLUCAN [Concomitant]
  4. PRO-EFFERALGAN [Concomitant]
  5. GASTROGRAFIN [Concomitant]
  6. KANRENOL [Concomitant]
  7. PIPERACILLIN+TAZOBACTAM IBIGEN [Suspect]
     Indication: SEPSIS
     Dosage: 2 DOSAGE FORM DAILYPIPERACILLIN 4 G+ TAZOBACTAM 0.5 G
     Route: 042
     Dates: start: 20101215, end: 20101221
  8. CISATRACURIUM BESYLATE [Concomitant]
  9. HUMULIN R [Concomitant]
  10. CORDARONE [Concomitant]
  11. PIPERACILLIN+TAZOBACTAM IBIGEN [Suspect]
     Dosage: 4 DOSAGE FORM DAILY, PIPERACILLIN 4 G + TAZOBACTAM 0.5 G
     Route: 042
     Dates: start: 20101222, end: 20101225
  12. TARGOCID [Suspect]
     Indication: SEPSIS
     Dosage: 2 DF DAILY, 200 MG / 3 ML
     Route: 042
     Dates: start: 20101225, end: 20110104
  13. ZYVOX [Suspect]
     Indication: SEPSIS
     Route: 042
     Dates: start: 20110104, end: 20110113
  14. ALBUMINA BAXTER [Concomitant]
     Dosage: 50 G / L
  15. LASIX [Concomitant]
  16. PIPERACILLIN+TAZOBACTAM IBIGEN [Suspect]
     Dosage: 3 DOSAGE FORM DAILY, PIPERACILLIN 2 G + TAZOBACTAM 0.25 G
     Route: 042
     Dates: start: 20101226, end: 20101230
  17. AMIKACIN TEVA [Suspect]
     Indication: SEPSIS
     Dosage: 2 DF DAILY, 0.5 G / 2 ML
     Route: 042
     Dates: start: 20101220, end: 20101226
  18. NORADRENALINE TARTARATE [Concomitant]
  19. MERREM [Suspect]
     Indication: SEPSIS
     Route: 042
     Dates: start: 20110104, end: 20110111
  20. CIPROFLOXACINE KABI [Suspect]
     Indication: SEPSIS
     Dosage: 2DF DAILY, 200 MG / 100 ML
     Route: 042
     Dates: start: 20101227, end: 20110103
  21. ANTRA [Concomitant]
  22. ETHACRYNIC ACID [Concomitant]
  23. MORPHINE HYDROCHLORIDE [Concomitant]
  24. CANCIDAS [Suspect]
     Indication: SEPSIS
     Route: 042
     Dates: start: 20101225, end: 20101225
  25. CANCIDAS [Suspect]
     Route: 042
     Dates: start: 20101226, end: 20110112
  26. KONAKION [Concomitant]

REACTIONS (1)
  - STEVENS-JOHNSON SYNDROME [None]
